FAERS Safety Report 6273100-1 (Version None)
Quarter: 2009Q3

REPORT INFORMATION
  Report Type: 
  Country: None (occurrence: None)
  Receive Date: 20090715
  Receipt Date: 20090715
  Transmission Date: 20100115
  Serious: Yes (Hospitalization)
  Sender: FDA-Public Use
  Company Number: None

PATIENT
  Age: 60 Year
  Sex: Female
  Weight: 115.6672 kg

DRUGS (12)
  1. TARCEVA [Suspect]
     Indication: RENAL CELL CARCINOMA
     Dosage: 150 MG PILL 1/DAY ORAL
     Route: 048
     Dates: start: 20080102
  2. SUNITINIB (SUTENT) 37.5MG [Suspect]
     Dosage: 37.5MG PILL 1/DAY ORAL
     Route: 048
  3. LEVOTHYROXINE SODIUM [Concomitant]
  4. ASPIRIN [Concomitant]
  5. CYMBALTA [Concomitant]
  6. LISINOPRIL [Concomitant]
  7. TYLENOL (CAPLET) [Concomitant]
  8. MULTI-VITAMIN [Concomitant]
  9. VITAMIN D [Concomitant]
  10. COMPAZINE [Concomitant]
  11. TARCEVA [Concomitant]
  12. SUTENT [Concomitant]

REACTIONS (9)
  - BLOOD PRESSURE SYSTOLIC INCREASED [None]
  - BODY TEMPERATURE DECREASED [None]
  - CHOLECYSTECTOMY [None]
  - CHOLECYSTITIS ACUTE [None]
  - CHOLELITHIASIS [None]
  - COLONIC POLYP [None]
  - DIZZINESS [None]
  - GALLBLADDER OEDEMA [None]
  - OEDEMA PERIPHERAL [None]
